FAERS Safety Report 5135721-9 (Version None)
Quarter: 2006Q4

REPORT INFORMATION
  Report Type: 
  Country: None (occurrence: None)
  Receive Date: 20061024
  Receipt Date: 20061024
  Transmission Date: 20070319
  Serious: Yes (Life-Threatening, Hospitalization, Other)
  Sender: FDA-Public Use
  Company Number: None

PATIENT
  Age: 42 Year
  Sex: Female
  Weight: 78.0187 kg

DRUGS (4)
  1. DIOVAN [Suspect]
     Indication: BLOOD POTASSIUM DECREASED
     Dosage: 320MG   1 PER DAY   PO
     Route: 048
  2. DIOVAN [Suspect]
     Indication: BLOOD PRESSURE ABNORMAL
     Dosage: 320MG   1 PER DAY   PO
     Route: 048
  3. DIOVAN [Suspect]
     Indication: PROPHYLAXIS
     Dosage: 320MG   1 PER DAY   PO
     Route: 048
  4. DIOVAN HCT [Suspect]
     Dosage: 320MG/ 12.5 MG    1 PER DAY   PO
     Route: 048

REACTIONS (11)
  - CARDIAC DISORDER [None]
  - CARDIAC FAILURE CONGESTIVE [None]
  - DYSPNOEA [None]
  - FLUID RETENTION [None]
  - HAEMOGLOBIN DECREASED [None]
  - JOINT SWELLING [None]
  - LABORATORY TEST ABNORMAL [None]
  - OEDEMA [None]
  - OXYGEN SATURATION DECREASED [None]
  - PLEURAL EFFUSION [None]
  - RESPIRATORY DISORDER [None]
